FAERS Safety Report 7912439-8 (Version None)
Quarter: 2011Q4

REPORT INFORMATION
  Report Type: 
  Country: None (occurrence: None)
  Receive Date: 20111114
  Receipt Date: 20111102
  Transmission Date: 20120403
  Serious: Yes (Hospitalization)
  Sender: FDA-Public Use
  Company Number: FR-PFIZER INC-2011274277

PATIENT
  Age: 86 Year
  Sex: Female

DRUGS (12)
  1. AMLODIPINE BESYLATE [Concomitant]
     Dosage: UNK
     Dates: start: 20111008
  2. POTASSIUM CHLORIDE [Concomitant]
     Dosage: UNK
  3. COUMADIN [Suspect]
     Indication: DEEP VEIN THROMBOSIS
     Dosage: 6 MG, DAILY
     Route: 048
     Dates: start: 20111006, end: 20111007
  4. COUMADIN [Suspect]
     Indication: PULMONARY EMBOLISM
     Dosage: 8 MG, DAILY
     Route: 048
     Dates: start: 20111005, end: 20111005
  5. ALDALIX [Concomitant]
     Dosage: UNK
     Dates: end: 20111007
  6. COUMADIN [Suspect]
     Dosage: 4 MG, DAILY
     Route: 048
     Dates: start: 20111008
  7. POLYETHYLENE GLYCOL [Concomitant]
     Dosage: UNK
  8. RAMIPRIL [Suspect]
     Dosage: 2.5 MG, DAILY
     Route: 048
     Dates: start: 20111006
  9. CALCIPARINE [Suspect]
     Indication: DEEP VEIN THROMBOSIS
  10. JUSTOR [Concomitant]
     Dosage: UNK
     Dates: end: 20111004
  11. FENOFIBRATE [Concomitant]
     Dosage: UNK
  12. CALCIPARINE [Suspect]
     Indication: PULMONARY EMBOLISM
     Dosage: 0.3 ML, 3X/DAY
     Route: 058
     Dates: start: 20111005, end: 20111010

REACTIONS (2)
  - PRURITUS [None]
  - RASH MACULO-PAPULAR [None]
